FAERS Safety Report 12308629 (Version 2)
Quarter: 2016Q2

REPORT INFORMATION
  Report Type: Report from Study
  Country: US (occurrence: US)
  Receive Date: 20160427
  Receipt Date: 20160502
  Transmission Date: 20160815
  Serious: Yes (Other)
  Sender: FDA-Public Use
  Company Number: US-ROCHE-1748247

PATIENT
  Sex: Male

DRUGS (1)
  1. NUTROPIN AQ [Suspect]
     Active Substance: SOMATROPIN
     Indication: PRODUCT USED FOR UNKNOWN INDICATION
     Route: 065

REACTIONS (3)
  - Malaise [Unknown]
  - Coma [Unknown]
  - Lyme disease [Unknown]
